FAERS Safety Report 6820329-7 (Version None)
Quarter: 2010Q3

REPORT INFORMATION
  Report Type: 
  Country: None (occurrence: None)
  Receive Date: 20100707
  Receipt Date: 20100701
  Transmission Date: 20110219
  Serious: Yes (Death, Other)
  Sender: FDA-Public Use
  Company Number: PHHY2010AU43571

PATIENT
  Age: 12 Year
  Sex: Male

DRUGS (1)
  1. CYCLOSPORINE [Suspect]
     Indication: LIVER TRANSPLANT

REACTIONS (5)
  - ABSCESS FUNGAL [None]
  - FUNGAL SEPSIS [None]
  - HEPATIC FUNCTION ABNORMAL [None]
  - LIVER TRANSPLANT REJECTION [None]
  - MECHANICAL VENTILATION [None]
